FAERS Safety Report 5232629-5 (Version None)
Quarter: 2007Q1

REPORT INFORMATION
  Report Type: 
  Country: None (occurrence: None)
  Receive Date: 20070205
  Receipt Date: 20070129
  Transmission Date: 20070707
  Serious: Yes (Death)
  Sender: FDA-Public Use
  Company Number: 163-21880-07010413

PATIENT
  Age: 69 Year
  Sex: Male

DRUGS (8)
  1. REVLIMID [Suspect]
     Indication: MYELOFIBROSIS
     Dosage: 5 MG, 1 IN 1 D, ORAL
     Route: 048
     Dates: start: 20061103, end: 20061108
  2. LANTUS [Concomitant]
  3. ISOSORBIDE (ISOSORBIDE) [Concomitant]
  4. METOPROLOL TARTRATE [Concomitant]
  5. LASIX [Concomitant]
  6. RESTORIL [Concomitant]
  7. DIOVAN [Concomitant]
  8. MORPHINE SULFATE [Concomitant]

REACTIONS (3)
  - DISEASE PROGRESSION [None]
  - MYELOFIBROSIS [None]
  - PANCYTOPENIA [None]
